FAERS Safety Report 13237196 (Version 8)
Quarter: 2017Q2

REPORT INFORMATION
  Report Type: Report from Study
  Country: CA (occurrence: CA)
  Receive Date: 20170215
  Receipt Date: 20170424
  Transmission Date: 20170830
  Serious: Yes (Hospitalization, Other)
  Sender: FDA-Public Use
  Company Number: CA-EISAI MEDICAL RESEARCH-EC-2017-024760

PATIENT
  Age: 66 Year
  Sex: Male
  Weight: 79.8 kg

DRUGS (13)
  1. OMEGA 3 FISH OIL [Concomitant]
     Active Substance: FISH OIL\OMEGA-3 FATTY ACIDS
     Route: 048
     Dates: start: 2009
  2. LORCASERIN [Suspect]
     Active Substance: LORCASERIN HYDROCHLORIDE
     Indication: WEIGHT CONTROL
     Route: 048
     Dates: start: 20141029, end: 20170206
  3. VOLTAREN GEL DICLOFENAC SODIUM [Concomitant]
     Route: 061
     Dates: start: 20150703
  4. EFINACONAZOLE [Concomitant]
     Active Substance: EFINACONAZOLE
     Route: 061
     Dates: start: 20160913
  5. TAMSULOSIN HCL [Concomitant]
     Active Substance: TAMSULOSIN
     Route: 048
     Dates: start: 2013
  6. DUSTATERIDE [Concomitant]
     Route: 048
     Dates: start: 20160320
  7. PINAVERIUM BROMIDE [Concomitant]
     Active Substance: PINAVERIUM BROMIDE
     Route: 048
     Dates: start: 20160810
  8. MULTIVITAMIN [Concomitant]
     Active Substance: VITAMINS
     Route: 048
     Dates: start: 2009
  9. ASA [Concomitant]
     Active Substance: ASPIRIN
     Route: 048
     Dates: start: 2004
  10. COVERSYL [Concomitant]
     Active Substance: PERINDOPRIL
     Route: 048
     Dates: start: 20100929
  11. NITROGLYCERIN. [Concomitant]
     Active Substance: NITROGLYCERIN
     Route: 050
     Dates: start: 2012
  12. ROSUVASTATIN. [Concomitant]
     Active Substance: ROSUVASTATIN
     Route: 048
     Dates: start: 20110421
  13. TECTA [Concomitant]
     Active Substance: PANTOPRAZOLE MAGNESIUM
     Route: 048
     Dates: start: 20151027

REACTIONS (10)
  - Acute kidney injury [Recovered/Resolved]
  - Cholelithiasis [Recovered/Resolved]
  - Cholecystitis [Recovered/Resolved]
  - Cholangitis [Recovered/Resolved]
  - Acute myocardial infarction [Recovered/Resolved]
  - Escherichia sepsis [Recovering/Resolving]
  - Portal vein thrombosis [Not Recovered/Not Resolved]
  - Hepatic vascular thrombosis [Not Recovered/Not Resolved]
  - Pancreatitis acute [Recovered/Resolved]
  - Pulmonary hypertension [Not Recovered/Not Resolved]

NARRATIVE: CASE EVENT DATE: 20170206
